FAERS Safety Report 8501441-3 (Version None)
Quarter: 2012Q3

REPORT INFORMATION
  Report Type: 
  Country: None (occurrence: None)
  Receive Date: 20120710
  Receipt Date: 20120705
  Transmission Date: 20120928
  Serious: Yes (Hospitalization)
  Sender: FDA-Public Use
  Company Number: US-ROCHE-1064668

PATIENT
  Sex: Female
  Weight: 86.26 kg

DRUGS (2)
  1. XELODA [Suspect]
     Indication: COLORECTAL CANCER METASTATIC
     Route: 048
     Dates: start: 20110801, end: 20120604
  2. COUMADIN [Concomitant]
     Indication: ANTICOAGULANT THERAPY
     Route: 048

REACTIONS (12)
  - VOMITING [None]
  - ILEUS [None]
  - DECREASED APPETITE [None]
  - CONVULSION [None]
  - WEIGHT DECREASED [None]
  - MALNUTRITION [None]
  - ASTHENIA [None]
  - DEHYDRATION [None]
  - ONYCHOCLASIS [None]
  - NAUSEA [None]
  - NAIL DISCOLOURATION [None]
  - PNEUMONIA ASPIRATION [None]
